FAERS Safety Report 20773749 (Version 2)
Quarter: 2022Q3

REPORT INFORMATION
  Report Type: Spontaneous
  Country: AU (occurrence: AU)
  Receive Date: 20220502
  Receipt Date: 20220704
  Transmission Date: 20221026
  Serious: Yes (Other)
  Sender: FDA-Public Use
  Company Number: AU-SUN PHARMACEUTICAL INDUSTRIES LTD-2022RR-335046

PATIENT
  Age: 4 Decade
  Sex: Female

DRUGS (5)
  1. FINGOLIMOD [Suspect]
     Active Substance: FINGOLIMOD
     Indication: Multiple sclerosis
     Dosage: UNK
     Route: 065
  2. PREDNISOLONE [Suspect]
     Active Substance: PREDNISOLONE
     Indication: Myelin oligodendrocyte glycoprotein antibody-associated disease
     Dosage: UNK
     Route: 048
  3. MYCOPHENOLIC ACID [Suspect]
     Active Substance: MYCOPHENOLIC ACID
     Indication: Myelin oligodendrocyte glycoprotein antibody-associated disease
     Dosage: UNK
     Route: 065
  4. NATALIZUMAB [Concomitant]
     Active Substance: NATALIZUMAB
     Indication: Myelin oligodendrocyte glycoprotein antibody-associated disease
     Dosage: UNK
     Route: 065
     Dates: start: 2016
  5. OCRELIZUMAB [Concomitant]
     Active Substance: OCRELIZUMAB
     Indication: Myelin oligodendrocyte glycoprotein antibody-associated disease
     Dosage: UNK
     Route: 065
     Dates: start: 2017

REACTIONS (3)
  - Drug ineffective [Unknown]
  - Therapeutic product effect incomplete [Unknown]
  - Malaise [Unknown]
